FAERS Safety Report 20945621 (Version 3)
Quarter: 2022Q2

REPORT INFORMATION
  Report Type: Spontaneous
  Country: FR (occurrence: FR)
  Receive Date: 20220610
  Receipt Date: 20220623
  Transmission Date: 20220721
  Serious: Yes (Hospitalization, Other)
  Sender: FDA-Public Use
  Company Number: FR-GLAXOSMITHKLINE-FR2022GSK083724

PATIENT
  Age: 29 Year
  Sex: Male
  Weight: 99 kg

DRUGS (18)
  1. VALPROIC ACID [Interacting]
     Active Substance: VALPROIC ACID
     Indication: Schizoaffective disorder
     Dosage: 2000 MILLIGRAM, QD
     Route: 065
  2. VALPROIC ACID [Interacting]
     Active Substance: VALPROIC ACID
     Indication: Acute psychosis
     Dosage: 2500 MILLIGRAM, QD (DOSAGE INCREASE)
     Route: 065
  3. VALPROIC ACID [Interacting]
     Active Substance: VALPROIC ACID
     Dosage: DOSE REDUCTION
     Route: 065
  4. VALPROIC ACID [Interacting]
     Active Substance: VALPROIC ACID
     Dosage: 1500 MILLIGRAM
     Route: 065
  5. TERALITHE [Interacting]
     Active Substance: LITHIUM CARBONATE
     Indication: Schizoaffective disorder
     Dosage: 40 MILLIGRAM, QD
     Route: 065
  6. TERALITHE [Interacting]
     Active Substance: LITHIUM CARBONATE
     Indication: Acute psychosis
     Dosage: 400 MILLIGRAM, QD (400 MG, 1D (LP)
     Route: 048
  7. LEVOMEPROMAZINE [Suspect]
     Active Substance: LEVOMEPROMAZINE
     Indication: Antipsychotic therapy
     Dosage: 300 MILLIGRAM, QD
     Route: 065
  8. LEVOMEPROMAZINE [Suspect]
     Active Substance: LEVOMEPROMAZINE
     Indication: Schizoaffective disorder
     Dosage: 55 MILLIGRAM, QD
     Route: 065
  9. LEVOMEPROMAZINE [Suspect]
     Active Substance: LEVOMEPROMAZINE
     Indication: Acute psychosis
  10. DIAZEPAM [Suspect]
     Active Substance: DIAZEPAM
     Indication: Antipsychotic therapy
     Dosage: 20 MILLIGRAM, QD
     Route: 065
  11. DIAZEPAM [Suspect]
     Active Substance: DIAZEPAM
     Indication: Schizoaffective disorder
     Dosage: 3 MILLIGRAM, QD
     Route: 065
  12. DIAZEPAM [Suspect]
     Active Substance: DIAZEPAM
     Indication: Acute psychosis
     Dosage: 5 MILLIGRAM, QD
     Route: 065
  13. PHENOTHIAZINE [Suspect]
     Active Substance: PHENOTHIAZINE
     Indication: Antipsychotic therapy
     Dosage: UNK
     Route: 065
  14. PALIPERIDONE [Concomitant]
     Active Substance: PALIPERIDONE
     Indication: Antipsychotic therapy
     Dosage: 150 MILLIGRAM
     Route: 065
  15. PALIPERIDONE [Concomitant]
     Active Substance: PALIPERIDONE
     Indication: Mania
     Dosage: 100 MILLIGRAM
     Route: 065
  16. PALIPERIDONE [Concomitant]
     Active Substance: PALIPERIDONE
     Indication: Acute psychosis
  17. RISPERIDONE [Concomitant]
     Active Substance: RISPERIDONE
     Indication: Schizoaffective disorder
     Dosage: 4 MILLIGRAM, QD
     Route: 065
  18. RISPERIDONE [Concomitant]
     Active Substance: RISPERIDONE
     Indication: Mania
     Dosage: 50 MILLIGRAM (50 MG EXTENDED-RELEASE)
     Route: 065

REACTIONS (11)
  - Psychomotor retardation [Recovered/Resolved]
  - Drug level increased [Recovered/Resolved]
  - Disorientation [Recovered/Resolved]
  - Cognitive disorder [Recovered/Resolved]
  - Confusional state [Recovered/Resolved]
  - Hyperammonaemic encephalopathy [Recovered/Resolved]
  - Depressed level of consciousness [Recovered/Resolved]
  - Toxic encephalopathy [Recovered/Resolved]
  - Drug interaction [Unknown]
  - Drug ineffective [Unknown]
  - Hyperammonaemia [Recovered/Resolved]
